FAERS Safety Report 6124546-3 (Version None)
Quarter: 2009Q1

REPORT INFORMATION
  Report Type: 
  Country: None (occurrence: None)
  Receive Date: 20090319
  Receipt Date: 20090310
  Transmission Date: 20090719
  Serious: Yes (Hospitalization)
  Sender: FDA-Public Use
  Company Number: DE-MERCK-0903USA02257

PATIENT
  Age: 55 Year
  Sex: Female

DRUGS (2)
  1. PRINIVIL [Suspect]
     Indication: HYPERTENSION
     Route: 048
     Dates: end: 20090109
  2. FLUTIDE [Suspect]
     Indication: ASTHMA
     Route: 048

REACTIONS (1)
  - TACHYARRHYTHMIA [None]
